FAERS Safety Report 25445346 (Version 2)
Quarter: 2025Q2

REPORT INFORMATION
  Report Type: Report from Study
  Country: GB (occurrence: GB)
  Receive Date: 20250617
  Receipt Date: 20250620
  Transmission Date: 20250717
  Serious: Yes (Disabling, Other)
  Sender: CELLTRION
  Company Number: GB-CELLTRION INC.-2025GB018131

PATIENT

DRUGS (1)
  1. INFLIXIMAB-DYYB [Suspect]
     Active Substance: INFLIXIMAB-DYYB
     Indication: Crohn^s disease
     Dosage: 120MG/1ML, INJECT ONE EVERY TWO WEEKS
     Route: 058
     Dates: start: 202505

REACTIONS (15)
  - Anal fistula [Unknown]
  - Sitting disability [Unknown]
  - Diarrhoea haemorrhagic [Unknown]
  - Headache [Unknown]
  - Pyrexia [Unknown]
  - Chills [Unknown]
  - Rash [Unknown]
  - Sepsis [Unknown]
  - Pain [Unknown]
  - Rash [Unknown]
  - Dark circles under eyes [Unknown]
  - Eye irritation [Unknown]
  - Eye pain [Unknown]
  - Swelling face [Unknown]
  - Nausea [Unknown]
